FAERS Safety Report 4955110-7 (Version None)
Quarter: 2006Q1

REPORT INFORMATION
  Report Type: 
  Country: None (occurrence: None)
  Receive Date: 20060322
  Receipt Date: 20060307
  Transmission Date: 20060701
  Serious: Yes (Hospitalization)
  Sender: FDA-Public Use
  Company Number: US200603002670

PATIENT
  Age: 31 Year
  Sex: Male
  Weight: 125.2 kg

DRUGS (11)
  1. ZYPREXA [Suspect]
     Indication: HALLUCINATION
     Dosage: SEE IMAGE
     Route: 048
     Dates: start: 19970923, end: 19971001
  2. ZYPREXA [Suspect]
     Indication: HALLUCINATION
     Dosage: SEE IMAGE
     Route: 048
     Dates: start: 19971001, end: 19980316
  3. ZYPREXA [Suspect]
     Indication: HALLUCINATION
     Dosage: SEE IMAGE
     Route: 048
     Dates: start: 19980316, end: 19991207
  4. ZYPREXA [Suspect]
     Indication: HALLUCINATION
     Dosage: SEE IMAGE
     Route: 048
     Dates: start: 19991207, end: 20000922
  5. ZYPREXA [Suspect]
     Indication: HALLUCINATION
     Dosage: SEE IMAGE
     Route: 048
     Dates: start: 20000922, end: 20020301
  6. ZYPREXA [Suspect]
     Indication: HALLUCINATION
     Dosage: SEE IMAGE
     Route: 048
     Dates: start: 20020301, end: 20030924
  7. ZYPREXA [Suspect]
     Indication: HALLUCINATION
     Dosage: SEE IMAGE
     Route: 048
     Dates: start: 20030924, end: 20040206
  8. ZYPREXA [Suspect]
     Indication: HALLUCINATION
     Dosage: SEE IMAGE
     Route: 048
     Dates: start: 20040206
  9. PAMELOR [Concomitant]
  10. PROCARDIA XL [Concomitant]
  11. ANTABUSE [Concomitant]

REACTIONS (10)
  - CONDITION AGGRAVATED [None]
  - DEPRESSION [None]
  - DIZZINESS [None]
  - DRUG ABUSER [None]
  - HYPERGLYCAEMIA [None]
  - HYPERHIDROSIS [None]
  - PSYCHOTIC DISORDER [None]
  - SCHIZOAFFECTIVE DISORDER [None]
  - SUICIDAL IDEATION [None]
  - TREATMENT NONCOMPLIANCE [None]
